FAERS Safety Report 24333348 (Version 1)
Quarter: 2024Q3

REPORT INFORMATION
  Report Type: Spontaneous
  Country: US (occurrence: None)
  Receive Date: 20240917
  Receipt Date: 20240917
  Transmission Date: 20241016
  Serious: No
  Sender: Public
  Company Number: None

PATIENT
  Age: 31 Year
  Sex: Female

DRUGS (1)
  1. ZURZUVAE [Suspect]
     Active Substance: ZURANOLONE
     Indication: Perinatal depression
     Dosage: FREQUENCY : AT BEDTIME;?
     Dates: start: 20240915

REACTIONS (4)
  - Drug ineffective [None]
  - Brain fog [None]
  - Irritability [None]
  - Mood swings [None]

NARRATIVE: CASE EVENT DATE: 20240915
